FAERS Safety Report 11621950 (Version 1)
Quarter: 2015Q4

REPORT INFORMATION
  Report Type: Spontaneous
  Country: US (occurrence: None)
  Receive Date: 20151009
  Receipt Date: 20151009
  Transmission Date: 20160304
  Serious: Yes (Life-Threatening)
  Sender: FDA-Public Use
  Company Number: None

PATIENT
  Age: 10 Year
  Sex: Male
  Weight: 36 kg

DRUGS (1)
  1. CANDIDA [Suspect]
     Active Substance: CANDIDA ALBICANS
     Indication: SKIN PAPILLOMA
     Dosage: 1:50 DILUATION, 0.4 ML TOTAL
     Route: 023
     Dates: start: 20151001

REACTIONS (7)
  - Nausea [None]
  - Hypoxia [None]
  - Anaphylactic reaction [None]
  - Vomiting [None]
  - Hypotension [None]
  - Wheezing [None]
  - Dermatitis exfoliative [None]

NARRATIVE: CASE EVENT DATE: 20151001
